FAERS Safety Report 9745489 (Version 1)
Quarter: 2013Q4

REPORT INFORMATION
  Report Type: Spontaneous
  Country: US (occurrence: US)
  Receive Date: 20131211
  Receipt Date: 20131211
  Transmission Date: 20140711
  Serious: No
  Sender: FDA-Public Use
  Company Number: US-BIOGENIDEC-2013BI088094

PATIENT
  Age: 58 Year
  Sex: Female

DRUGS (18)
  1. TECFIDERA [Suspect]
     Indication: MULTIPLE SCLEROSIS
  2. TECFIDERA [Suspect]
     Indication: MULTIPLE SCLEROSIS
     Route: 048
     Dates: start: 20130716
  3. TECFIDERA [Suspect]
     Indication: MULTIPLE SCLEROSIS
     Route: 048
     Dates: start: 201308
  4. TECFIDERA [Suspect]
     Indication: MULTIPLE SCLEROSIS
     Route: 048
     Dates: start: 20130801, end: 20130807
  5. TECFIDERA [Suspect]
     Indication: MULTIPLE SCLEROSIS
     Route: 048
     Dates: start: 20130808
  6. AVONEX [Concomitant]
     Route: 030
     Dates: start: 20100315
  7. AMLODIPINE BESYLATE [Concomitant]
  8. NORVASC [Concomitant]
  9. ENABLEX [Concomitant]
  10. CITALOPRAM [Concomitant]
  11. WELLBUTRIN SR [Concomitant]
  12. NEXIUM [Concomitant]
  13. OMEGA 3-6-9 COMPLEX [Concomitant]
  14. CVS VITAMIN C [Concomitant]
  15. ARICEPT [Concomitant]
  16. B12 [Concomitant]
  17. AMPYRA [Concomitant]
  18. CVS VITAMIN D3 [Concomitant]

REACTIONS (5)
  - Salivary hypersecretion [Recovered/Resolved]
  - Weight increased [Unknown]
  - General symptom [Recovered/Resolved]
  - Flushing [Not Recovered/Not Resolved]
  - Nausea [Not Recovered/Not Resolved]
